FAERS Safety Report 18946982 (Version 2)
Quarter: 2021Q1

REPORT INFORMATION
  Report Type: Report from Study
  Country: FR (occurrence: FR)
  Receive Date: 20210226
  Receipt Date: 20210315
  Transmission Date: 20210420
  Serious: Yes (Hospitalization)
  Sender: FDA-Public Use
  Company Number: FR-BAYER-2021-083996

PATIENT
  Age: 72 Year
  Sex: Female
  Weight: 81.3 kg

DRUGS (2)
  1. AVELUMAB [Suspect]
     Active Substance: AVELUMAB
     Indication: THYROID CANCER
     Dosage: 820 MG
     Route: 042
     Dates: start: 20210215, end: 20210215
  2. REGORAFENIB. [Suspect]
     Active Substance: REGORAFENIB
     Indication: THYROID CANCER
     Dosage: 160 MG, QD
     Route: 048
     Dates: start: 20210203, end: 20210217

REACTIONS (2)
  - Syncope [Not Recovered/Not Resolved]
  - Atrial fibrillation [Not Recovered/Not Resolved]

NARRATIVE: CASE EVENT DATE: 20210218
